FAERS Safety Report 10066618 (Version 2)
Quarter: 2014Q2

REPORT INFORMATION
  Report Type: Report from Study
  Country: US (occurrence: US)
  Receive Date: 20140408
  Receipt Date: 20140616
  Transmission Date: 20141212
  Serious: Yes (Other)
  Sender: FDA-Public Use
  Company Number: PHEH2014US006361

PATIENT
  Age: 28 Year
  Sex: Male
  Weight: 63.49 kg

DRUGS (2)
  1. TOBI PODHALER [Suspect]
     Indication: CYSTIC FIBROSIS
     Dosage: 112 MG, BID
     Route: 055
  2. TOBI PODHALER [Suspect]
     Indication: CYSTIC FIBROSIS LUNG

REACTIONS (4)
  - Cystic fibrosis [Unknown]
  - Malaise [Unknown]
  - Condition aggravated [Unknown]
  - Liver function test abnormal [Unknown]
